FAERS Safety Report 14846625 (Version 1)
Quarter: 2018Q2

REPORT INFORMATION
  Report Type: Spontaneous
  Country: US (occurrence: US)
  Receive Date: 20180419
  Receipt Date: 20180419
  Transmission Date: 20180711
  Serious: No
  Sender: FDA-Public Use
  Company Number: None

PATIENT
  Age: 44 Year
  Sex: Female
  Weight: 99 kg

DRUGS (1)
  1. MOVANTIK [Suspect]
     Active Substance: NALOXEGOL OXALATE
     Indication: CONSTIPATION
     Dates: start: 20180418, end: 20180418

REACTIONS (6)
  - Constipation [None]
  - Irritability [None]
  - Vomiting [None]
  - Anxiety [None]
  - Diarrhoea [None]
  - Withdrawal syndrome [None]

NARRATIVE: CASE EVENT DATE: 20180418
